FAERS Safety Report 5253830-0 (Version None)
Quarter: 2007Q1

REPORT INFORMATION
  Report Type: 
  Country: None (occurrence: None)
  Receive Date: 20070227
  Receipt Date: 20070214
  Transmission Date: 20070707
  Serious: Yes (Other)
  Sender: FDA-Public Use
  Company Number: 07H-163-0312057-00

PATIENT

DRUGS (2)
  1. SUCCINYLCHOLINE CHLORIDE [Suspect]
     Indication: INDUCTION OF ANAESTHESIA
  2. PANCURONIUM [Concomitant]

REACTIONS (3)
  - BLOOD CREATINE PHOSPHOKINASE INCREASED [None]
  - POST PROCEDURAL COMPLICATION [None]
  - POSTOPERATIVE FEVER [None]
